FAERS Safety Report 21796078 (Version 1)
Quarter: 2022Q4

REPORT INFORMATION
  Report Type: Spontaneous
  Country: US (occurrence: None)
  Receive Date: 20221228
  Receipt Date: 20221228
  Transmission Date: 20230112
  Serious: Yes (Other)
  Sender: FDA-Public Use
  Company Number: None

PATIENT
  Age: 67 Year
  Sex: Female

DRUGS (24)
  1. OPSUMIT [Suspect]
     Active Substance: MACITENTAN
     Indication: Pulmonary arterial hypertension
     Dosage: FREQUENCY : 3 TIMES A DAY;?
     Route: 048
     Dates: start: 20190917
  2. SILDENAFIL [Suspect]
     Active Substance: SILDENAFIL
  3. SELEXIPAG [Suspect]
     Active Substance: SELEXIPAG
  4. METAMUCIL [Suspect]
     Active Substance: PLANTAGO SEED
  5. MIRALAX [Suspect]
     Active Substance: POLYETHYLENE GLYCOL 3350
  6. ASPIRIN [Concomitant]
     Active Substance: ASPIRIN
  7. SERTRALINE [Concomitant]
     Active Substance: SERTRALINE HYDROCHLORIDE
  8. ATORVASTATIN [Concomitant]
     Active Substance: ATORVASTATIN
  9. DILTIAZEM [Concomitant]
     Active Substance: DILTIAZEM
  10. LIDOCAINE PATCH [Concomitant]
     Active Substance: LIDOCAINE
  11. burrex [Concomitant]
  12. SPIRONOLACTONE [Concomitant]
     Active Substance: SPIRONOLACTONE
  13. kOtab [Concomitant]
  14. METFORMIN [Concomitant]
     Active Substance: METFORMIN HYDROCHLORIDE
  15. VITAMIN B12 [Concomitant]
     Active Substance: CYANOCOBALAMIN
  16. ascorbic acidr [Concomitant]
  17. folic acidr [Concomitant]
  18. CALCIUM CARBONATE [Concomitant]
     Active Substance: CALCIUM CARBONATE
  19. BENEFIBER [Concomitant]
     Active Substance: STARCH, WHEAT
  20. ALBUTEROL SULFATE [Concomitant]
     Active Substance: ALBUTEROL SULFATE
  21. LORATADINE [Concomitant]
     Active Substance: LORATADINE
  22. WIXELA INHUB [Concomitant]
     Active Substance: FLUTICASONE PROPIONATE\SALMETEROL XINAFOATE
  23. FERROUS SULFATE [Concomitant]
     Active Substance: FERROUS SULFATE
  24. FLONASE [Concomitant]
     Active Substance: FLUTICASONE PROPIONATE

REACTIONS (1)
  - Refusal of treatment by patient [None]

NARRATIVE: CASE EVENT DATE: 20221212
